FAERS Safety Report 9978183 (Version 1)
Quarter: 2014Q1

REPORT INFORMATION
  Report Type: Spontaneous
  Country: US (occurrence: US)
  Receive Date: 20140306
  Receipt Date: 20140306
  Transmission Date: 20141002
  Serious: No
  Sender: FDA-Public Use
  Company Number: US-PFIZER INC-2014065020

PATIENT
  Sex: Female

DRUGS (3)
  1. LYRICA [Suspect]
     Indication: NEUROPATHY PERIPHERAL
     Dosage: 200 MG, 2X/DAY
  2. LYRICA [Suspect]
     Dosage: UNK, 2X/DAY
  3. LYRICA [Suspect]
     Dosage: 300 MG, 2X/DAY

REACTIONS (1)
  - Amnesia [Unknown]
